FAERS Safety Report 10758669 (Version 2)
Quarter: 2015Q1

REPORT INFORMATION
  Report Type: Spontaneous
  Country: US (occurrence: US)
  Receive Date: 20150203
  Receipt Date: 20150203
  Transmission Date: 20150721
  Serious: Yes (Hospitalization, Other)
  Sender: FDA-Public Use
  Company Number: US-ACTAVIS-2015-01010

PATIENT
  Age: 35 Year
  Sex: Male
  Weight: 91 kg

DRUGS (5)
  1. OXYCODONE HYDROCHLORIDE (AELLC) [Suspect]
     Active Substance: OXYCODONE HYDROCHLORIDE
     Indication: BREAKTHROUGH PAIN
     Dosage: 15 MG Q4-6H
     Route: 065
     Dates: start: 201304, end: 201306
  2. DIAZEPAM (WATSON LABORATORIES) [Suspect]
     Active Substance: DIAZEPAM
     Indication: MUSCLE SPASMS
     Dosage: 10 MG Q4-6H
     Route: 065
     Dates: start: 201304, end: 201305
  3. PHILLIPS STOOL SOFTENER BULK DOCUSATE [Concomitant]
     Active Substance: DOCUSATE SODIUM
     Indication: PRODUCT USED FOR UNKNOWN INDICATION
     Dosage: UNK, UNKNOWN
     Route: 065
  4. OXYCONTIN [Suspect]
     Active Substance: OXYCODONE HYDROCHLORIDE
     Indication: PAIN
     Dosage: UNK, BID
     Route: 065
     Dates: start: 201304, end: 201304
  5. BENZOATEO DE BENCILO [Suspect]
     Active Substance: BENZYL BENZOATE
     Indication: LOWER RESPIRATORY TRACT INFECTION
     Dosage: UNK
     Route: 065
     Dates: start: 201304, end: 201304

REACTIONS (7)
  - Coma [Unknown]
  - Spinal fusion surgery [Unknown]
  - Lethargy [Recovered/Resolved]
  - Personality change [Recovered/Resolved]
  - Lower respiratory tract infection [Recovered/Resolved]
  - Muscle spasms [Unknown]
  - Seizure [Recovered/Resolved]

NARRATIVE: CASE EVENT DATE: 201304
